FAERS Safety Report 9908592 (Version 2)
Quarter: 2014Q1

REPORT INFORMATION
  Report Type: Spontaneous
  Country: JP (occurrence: JP)
  Receive Date: 20140219
  Receipt Date: 20140305
  Transmission Date: 20141002
  Serious: Yes (Life-Threatening)
  Sender: FDA-Public Use
  Company Number: JP-ROCHE-1347074

PATIENT
  Age: 39 Year
  Sex: Male
  Weight: 54 kg

DRUGS (4)
  1. TAMIFLU [Suspect]
     Indication: INFLUENZA
     Route: 048
     Dates: start: 20140120, end: 20140123
  2. GLYCYRON [Concomitant]
     Route: 048
  3. URSO [Concomitant]
     Route: 048
  4. JUVELA N [Concomitant]
     Route: 048

REACTIONS (3)
  - Renal failure acute [Unknown]
  - Pancreatitis [Unknown]
  - Hepatic failure [Unknown]
